FAERS Safety Report 9473854 (Version 1)
Quarter: 2013Q3

REPORT INFORMATION
  Report Type: Spontaneous
  Country: US (occurrence: US)
  Receive Date: 20130823
  Receipt Date: 20130823
  Transmission Date: 20140515
  Serious: No
  Sender: FDA-Public Use
  Company Number: US-BRISTOL-MYERS SQUIBB COMPANY-17052465

PATIENT
  Age: 49 Year
  Sex: Female

DRUGS (4)
  1. SPRYCEL [Suspect]
     Route: 048
     Dates: start: 201111
  2. PLAQUENIL [Suspect]
     Dosage: PLAQUENIL TAB 200MG
  3. IRON [Concomitant]
     Dosage: IRON TAB 18MG
  4. VITAMIN D [Concomitant]
     Dosage: VITAMIN D CAP 1000UNIT

REACTIONS (1)
  - Nausea [Unknown]
